FAERS Safety Report 11450081 (Version 1)
Quarter: 2015Q3

REPORT INFORMATION
  Report Type: Spontaneous
  Country: US (occurrence: US)
  Receive Date: 20150903
  Receipt Date: 20150903
  Transmission Date: 20151125
  Serious: No
  Sender: FDA-Public Use
  Company Number: US-ROCHE-1063585

PATIENT
  Sex: Female

DRUGS (2)
  1. RIBAVIRIN. [Suspect]
     Active Substance: RIBAVIRIN
     Indication: HEPATITIS C
     Route: 048
     Dates: start: 20120418
  2. PEGASYS [Suspect]
     Active Substance: PEGINTERFERON ALFA-2A
     Indication: HEPATITIS C
     Route: 058
     Dates: start: 20120418

REACTIONS (8)
  - Nausea [Unknown]
  - Abdominal pain [Unknown]
  - Rash papular [Unknown]
  - Ear pain [Unknown]
  - Erythema [Unknown]
  - Arthralgia [Unknown]
  - Diarrhoea [Unknown]
  - Pruritus [Unknown]
